FAERS Safety Report 9457459 (Version 2)
Quarter: 2013Q3

REPORT INFORMATION
  Report Type: Spontaneous
  Country: FR (occurrence: None)
  Receive Date: 20130812
  Receipt Date: 20130905
  Transmission Date: 20140515
  Serious: Yes (Hospitalization)
  Sender: FDA-Public Use
  Company Number: SYM-2013-07714

PATIENT
  Age: 48 Year
  Sex: Female

DRUGS (3)
  1. FLAGYL [Suspect]
     Indication: OSTEITIS
     Route: 048
     Dates: start: 20130322, end: 20130720
  2. TARGOCID [Suspect]
     Indication: OSTEITIS
     Dates: start: 20130430, end: 20130730
  3. ROCEPHINE [Suspect]
     Indication: OSTEITIS
     Dosage: 2 GM, DAILY, INTRAVENOUS (NOT OTHERWISE SPECIFIED)
     Route: 042
     Dates: start: 20130318, end: 20130720

REACTIONS (4)
  - Hepatocellular injury [None]
  - Cholestasis [None]
  - Cholecystitis [None]
  - Cholelithiasis [None]
